FAERS Safety Report 19870769 (Version 1)
Quarter: 2021Q3

REPORT INFORMATION
  Report Type: Spontaneous
  Country: PL (occurrence: PL)
  Receive Date: 20210923
  Receipt Date: 20210923
  Transmission Date: 20211014
  Serious: Yes (Other)
  Sender: FDA-Public Use
  Company Number: PL-SUN PHARMACEUTICAL INDUSTRIES LTD-2021R1-311649

PATIENT
  Age: 26 Year
  Sex: Male

DRUGS (16)
  1. FOLIC ACID. [Suspect]
     Active Substance: FOLIC ACID
     Indication: HAEMOPHAGOCYTIC LYMPHOHISTIOCYTOSIS
     Route: 065
  2. GENTAMICIN. [Suspect]
     Active Substance: GENTAMICIN
     Indication: HAEMOPHAGOCYTIC LYMPHOHISTIOCYTOSIS
     Route: 042
  3. IRON [Suspect]
     Active Substance: IRON
     Indication: HAEMOPHAGOCYTIC LYMPHOHISTIOCYTOSIS
     Dosage: 40 MILLIGRAM
     Route: 065
  4. COBALAMIN [Suspect]
     Active Substance: COBALAMIN
     Indication: HAEMOPHAGOCYTIC LYMPHOHISTIOCYTOSIS
     Route: 065
  5. CEFOTAXIME [Suspect]
     Active Substance: CEFOTAXIME SODIUM
     Indication: HAEMOPHAGOCYTIC LYMPHOHISTIOCYTOSIS
     Route: 042
  6. HYDROCORTISONE. [Suspect]
     Active Substance: HYDROCORTISONE
     Indication: PANCYTOPENIA
  7. IRON [Suspect]
     Active Substance: IRON
     Indication: PANCYTOPENIA
  8. COBALAMIN [Suspect]
     Active Substance: COBALAMIN
     Indication: PANCYTOPENIA
  9. CEFOTAXIME [Suspect]
     Active Substance: CEFOTAXIME SODIUM
     Indication: PANCYTOPENIA
  10. ENOXAPARIN SODIUM. [Suspect]
     Active Substance: ENOXAPARIN SODIUM
     Indication: PANCYTOPENIA
  11. HYDROCORTISONE. [Suspect]
     Active Substance: HYDROCORTISONE
     Indication: HAEMOPHAGOCYTIC LYMPHOHISTIOCYTOSIS
     Dosage: 2 X 100 MG
     Route: 065
  12. GENTAMICIN. [Suspect]
     Active Substance: GENTAMICIN
     Indication: PANCYTOPENIA
  13. FOLIC ACID. [Suspect]
     Active Substance: FOLIC ACID
     Indication: PANCYTOPENIA
  14. THIAMINE. [Suspect]
     Active Substance: THIAMINE
     Indication: HAEMOPHAGOCYTIC LYMPHOHISTIOCYTOSIS
     Route: 065
  15. THIAMINE. [Suspect]
     Active Substance: THIAMINE
     Indication: PANCYTOPENIA
  16. ENOXAPARIN SODIUM. [Suspect]
     Active Substance: ENOXAPARIN SODIUM
     Indication: HAEMOPHAGOCYTIC LYMPHOHISTIOCYTOSIS
     Dosage: 40 MILLIGRAM
     Route: 058

REACTIONS (2)
  - Therapeutic product effect incomplete [Unknown]
  - Condition aggravated [Unknown]
